FAERS Safety Report 19273801 (Version 1)
Quarter: 2021Q2

REPORT INFORMATION
  Report Type: Spontaneous
  Country: US (occurrence: US)
  Receive Date: 20210519
  Receipt Date: 20210519
  Transmission Date: 20210717
  Serious: No
  Sender: FDA-Public Use
  Company Number: US-TEVA-2021-US-1904970

PATIENT
  Age: 49 Year
  Sex: Female
  Weight: 86.18 kg

DRUGS (2)
  1. AJOVY [Suspect]
     Active Substance: FREMANEZUMAB-VFRM
     Indication: MIGRAINE
     Dosage: 225/1.5 ,MG/ML ,INJECTABLE SOLUTION
     Route: 065
     Dates: start: 20210419
  2. BOTOX [Concomitant]
     Active Substance: ONABOTULINUMTOXINA

REACTIONS (2)
  - Accidental exposure to product [Unknown]
  - Sneezing [Unknown]

NARRATIVE: CASE EVENT DATE: 202104
